FAERS Safety Report 9842878 (Version 1)
Quarter: 2014Q1

REPORT INFORMATION
  Report Type: Spontaneous
  Country: US (occurrence: US)
  Receive Date: 20140124
  Receipt Date: 20140124
  Transmission Date: 20141002
  Serious: No
  Sender: FDA-Public Use
  Company Number: US-PFIZER INC-2014022838

PATIENT
  Age: 26 Year
  Sex: Female
  Weight: 57.14 kg

DRUGS (2)
  1. LYRICA [Suspect]
     Indication: PAIN
     Dosage: UNK, 2X/DAY
     Dates: start: 20140113, end: 20140117
  2. CELEBREX [Concomitant]
     Indication: PAIN
     Dosage: 200 MG, 1X/DAY

REACTIONS (4)
  - Expired drug administered [Unknown]
  - Sleep disorder [Recovered/Resolved]
  - Nightmare [Recovered/Resolved]
  - Hyperhidrosis [Recovered/Resolved]
